FAERS Safety Report 7366844-1 (Version None)
Quarter: 2011Q1

REPORT INFORMATION
  Report Type: 
  Country: None (occurrence: None)
  Receive Date: 20110322
  Receipt Date: 20110315
  Transmission Date: 20110831
  Serious: Yes (Other)
  Sender: FDA-Public Use
  Company Number: DE-ROCHE-766433

PATIENT
  Sex: Female

DRUGS (2)
  1. DOXICYCLIN [Concomitant]
     Route: 048
  2. BONIVA [Suspect]
     Dosage: APPROXIMATELY 4-5 APPLICATIONS RECEIVED
     Route: 042

REACTIONS (3)
  - MALAISE [None]
  - PARAESTHESIA [None]
  - MUSCLE SPASMS [None]
